FAERS Safety Report 18712057 (Version 1)
Quarter: 2021Q1

REPORT INFORMATION
  Report Type: Spontaneous
  Country: US (occurrence: US)
  Receive Date: 20210106
  Receipt Date: 20210106
  Transmission Date: 20210419
  Serious: Yes (Death)
  Sender: FDA-Public Use
  Company Number: None

PATIENT
  Age: 64 Year
  Sex: Female

DRUGS (1)
  1. DOXORUBICIN LIP SDV 2MG/ML [Suspect]
     Active Substance: DOXORUBICIN
     Route: 041
     Dates: start: 202012

REACTIONS (1)
  - Death [None]

NARRATIVE: CASE EVENT DATE: 20210101
